FAERS Safety Report 25507844 (Version 3)
Quarter: 2025Q3

REPORT INFORMATION
  Report Type: Report from Study
  Country: US (occurrence: US)
  Receive Date: 20250703
  Receipt Date: 20250724
  Transmission Date: 20251020
  Serious: No
  Sender: ACADIA PHARMACEUTICALS
  Company Number: US-ACADIA PHARMACEUTICALS INC.-ACA-2025-TRF-007501

PATIENT
  Sex: Female
  Weight: 12 kg

DRUGS (3)
  1. DAYBUE [Suspect]
     Active Substance: TROFINETIDE
     Indication: Rett syndrome
     Route: 065
  2. DAYBUE [Suspect]
     Active Substance: TROFINETIDE
     Dates: start: 20250617
  3. DAYBUE [Suspect]
     Active Substance: TROFINETIDE
     Dosage: 30 MILLILITER, BID

REACTIONS (6)
  - Gastrointestinal disorder [Unknown]
  - Flatulence [Not Recovered/Not Resolved]
  - Gastrooesophageal reflux disease [Not Recovered/Not Resolved]
  - Weight decreased [Not Recovered/Not Resolved]
  - Vomiting [Unknown]
  - Underdose [Not Recovered/Not Resolved]
